FAERS Safety Report 15159162 (Version 1)
Quarter: 2018Q3

REPORT INFORMATION
  Report Type: Spontaneous
  Country: US (occurrence: US)
  Receive Date: 20180620
  Receipt Date: 20180620
  Transmission Date: 20181010
  Serious: Yes (Hospitalization)
  Sender: FDA-Public Use
  Company Number: None

PATIENT
  Age: 59 Year
  Sex: Male
  Weight: 79.4 kg

DRUGS (2)
  1. IXAZOMIB [Suspect]
     Active Substance: IXAZOMIB
     Indication: PLASMA CELL MYELOMA
     Dosage: ?          OTHER FREQUENCY:DAYS 1,8,15 OF 28;?
     Route: 048
     Dates: start: 20180608, end: 20180619
  2. PAMALIDOMIDE [Suspect]
     Active Substance: POMALIDOMIDE
     Indication: PLASMA CELL MYELOMA
     Dosage: ?          OTHER FREQUENCY:1?21 DAYS OF 28;?
     Route: 048
     Dates: start: 20180608, end: 20180619

REACTIONS (3)
  - Fatigue [None]
  - Pneumonia bacterial [None]
  - Rash maculo-papular [None]

NARRATIVE: CASE EVENT DATE: 20180619
